FAERS Safety Report 7887501-9 (Version None)
Quarter: 2011Q4

REPORT INFORMATION
  Report Type: 
  Country: None (occurrence: None)
  Receive Date: 20111103
  Receipt Date: 20111026
  Transmission Date: 20120403
  Serious: Yes (Hospitalization)
  Sender: FDA-Public Use
  Company Number: SE-SANTEN INC.-INC-11-000060

PATIENT
  Sex: Male

DRUGS (9)
  1. ZOLADEX [Concomitant]
  2. PULMICORT [Concomitant]
  3. TIMOLOL MALEATE [Suspect]
     Route: 047
     Dates: end: 20110913
  4. ASPIRIN [Concomitant]
  5. XALATAN [Concomitant]
     Route: 047
  6. ARTROX FILM COATED TABLET [Concomitant]
  7. AZOPT [Concomitant]
     Route: 047
  8. BICALUTAMID SANDOZ [Concomitant]
  9. BRICANYL [Concomitant]

REACTIONS (1)
  - ORTHOSTATIC HYPOTENSION [None]
